FAERS Safety Report 9819239 (Version 1)
Quarter: 2014Q1

REPORT INFORMATION
  Report Type: Spontaneous
  Country: JP (occurrence: JP)
  Receive Date: 20140115
  Receipt Date: 20140115
  Transmission Date: 20141002
  Serious: Yes (Hospitalization)
  Sender: FDA-Public Use
  Company Number: JP-009507513-1401JPN004674

PATIENT
  Sex: Female

DRUGS (4)
  1. REMERON [Suspect]
     Indication: AGGRESSION
     Dosage: 15 MG, QD
     Route: 048
  2. REMERON [Suspect]
     Indication: MAJOR DEPRESSION
  3. RISPERDAL [Concomitant]
     Indication: AGGRESSION
     Dosage: DAILY DOSAGE UNKNOWN, POR
     Route: 048
  4. RISPERDAL [Concomitant]
     Indication: MAJOR DEPRESSION

REACTIONS (2)
  - Fracture [Unknown]
  - Somnolence [Unknown]
